FAERS Safety Report 17591355 (Version 1)
Quarter: 2020Q1

REPORT INFORMATION
  Report Type: Spontaneous
  Country: US (occurrence: US)
  Receive Date: 20200327
  Receipt Date: 20200327
  Transmission Date: 20200409
  Serious: Yes (Other)
  Sender: FDA-Public Use
  Company Number: US-009507513-2003USA009522

PATIENT
  Age: 58 Year
  Sex: Female

DRUGS (1)
  1. DIFICID [Suspect]
     Active Substance: FIDAXOMICIN
     Indication: BACILLUS INFECTION
     Dosage: 2 TABLETS DAILY FOR 10 DAYS
     Route: 048
     Dates: start: 202002, end: 202002

REACTIONS (2)
  - Drug effective for unapproved indication [Unknown]
  - Bacillus infection [Not Recovered/Not Resolved]

NARRATIVE: CASE EVENT DATE: 202002
